FAERS Safety Report 18383186 (Version 2)
Quarter: 2021Q1

REPORT INFORMATION
  Report Type: Spontaneous
  Country: US (occurrence: US)
  Receive Date: 20201014
  Receipt Date: 20210326
  Transmission Date: 20210419
  Serious: Yes (Hospitalization, Disabling, Other)
  Sender: FDA-Public Use
  Company Number: US-PURDUE-USA-2020-0170348

PATIENT
  Age: 41 Year
  Sex: Female

DRUGS (21)
  1. OXYCONTIN [Suspect]
     Active Substance: OXYCODONE HYDROCHLORIDE
     Dosage: 60 MG, UNK
     Route: 048
     Dates: start: 20110626
  2. MS CONTIN [Suspect]
     Active Substance: MORPHINE SULFATE
     Indication: PRODUCT USED FOR UNKNOWN INDICATION
     Dosage: UNK
     Route: 048
  3. AMBIEN [Concomitant]
     Active Substance: ZOLPIDEM TARTRATE
     Indication: PRODUCT USED FOR UNKNOWN INDICATION
     Dosage: UNK
     Route: 065
  4. ZOLOFT [Concomitant]
     Active Substance: SERTRALINE HYDROCHLORIDE
     Indication: PRODUCT USED FOR UNKNOWN INDICATION
     Dosage: 20 MG, TID
     Route: 065
  5. BACLOFEN. [Concomitant]
     Active Substance: BACLOFEN
     Indication: PRODUCT USED FOR UNKNOWN INDICATION
     Dosage: UNK
     Route: 065
  6. REGLAN [Concomitant]
     Active Substance: METOCLOPRAMIDE HYDROCHLORIDE
     Indication: PRODUCT USED FOR UNKNOWN INDICATION
     Dosage: UNK
     Route: 065
  7. OXYCONTIN [Suspect]
     Active Substance: OXYCODONE HYDROCHLORIDE
     Dosage: 10 MG, UNK
     Route: 048
     Dates: start: 20110726
  8. DILAUDID [Suspect]
     Active Substance: HYDROMORPHONE HYDROCHLORIDE
     Indication: PRODUCT USED FOR UNKNOWN INDICATION
     Dosage: UNK
     Route: 048
  9. FENTANYL. [Suspect]
     Active Substance: FENTANYL
     Indication: PRODUCT USED FOR UNKNOWN INDICATION
     Dosage: UNK
     Route: 065
  10. TAGAMET [Concomitant]
     Active Substance: CIMETIDINE
     Indication: PRODUCT USED FOR UNKNOWN INDICATION
     Dosage: UNK
     Route: 065
  11. MEXILETINE [Concomitant]
     Active Substance: MEXILETINE
     Indication: PRODUCT USED FOR UNKNOWN INDICATION
     Dosage: UNK
     Route: 065
  12. MIRALAX [Concomitant]
     Active Substance: POLYETHYLENE GLYCOL 3350
     Indication: PRODUCT USED FOR UNKNOWN INDICATION
     Route: 065
  13. OXYCODONE HYDROCHLORIDE (SIMILAR TO NDA 22?272) [Suspect]
     Active Substance: OXYCODONE HYDROCHLORIDE
     Indication: PAIN
     Dosage: 5 MG, 120 TABS, APPROXIMATELY 5 PER DAY
     Route: 048
  14. AMITRIPTYLINE [Concomitant]
     Active Substance: AMITRIPTYLINE
     Indication: PRODUCT USED FOR UNKNOWN INDICATION
     Dosage: UNK
     Route: 065
  15. SKELAXIN [Concomitant]
     Active Substance: METAXALONE
     Indication: PRODUCT USED FOR UNKNOWN INDICATION
     Dosage: UNK
     Route: 065
  16. OXY IR [Suspect]
     Active Substance: OXYCODONE HYDROCHLORIDE
     Indication: PRODUCT USED FOR UNKNOWN INDICATION
     Dosage: UNK
     Route: 048
  17. MAGNESIUM CITRATE. [Concomitant]
     Active Substance: MAGNESIUM CITRATE
     Indication: PRODUCT USED FOR UNKNOWN INDICATION
     Dosage: UNK
     Route: 065
  18. DEPAKOTE [Concomitant]
     Active Substance: DIVALPROEX SODIUM
     Indication: PRODUCT USED FOR UNKNOWN INDICATION
     Dosage: UNK
     Route: 065
  19. OXYCONTIN [Suspect]
     Active Substance: OXYCODONE HYDROCHLORIDE
     Indication: PAIN
     Dosage: 40 MG, 90 TABS
     Route: 048
  20. OXYCODONE HCL CR TABLETS (SIMILAR TO NDA 22?272) [Suspect]
     Active Substance: OXYCODONE HYDROCHLORIDE
     Indication: COMPLEX REGIONAL PAIN SYNDROME
     Dosage: UNK
     Route: 048
  21. OXYCODONE HCL TABLETS (RHODES 91?490) [Suspect]
     Active Substance: OXYCODONE HYDROCHLORIDE
     Indication: COMPLEX REGIONAL PAIN SYNDROME
     Dosage: UNK
     Route: 048

REACTIONS (52)
  - Multiple organ dysfunction syndrome [Unknown]
  - Impaired gastric emptying [Unknown]
  - General physical health deterioration [Unknown]
  - Drug tolerance [Unknown]
  - Oedema [Unknown]
  - Scar [Unknown]
  - Neck pain [Unknown]
  - Intestinal anastomosis [Unknown]
  - Pulmonary embolism [Unknown]
  - Orthopaedic procedure [Unknown]
  - Arrhythmia [Unknown]
  - Gastric disorder [Unknown]
  - Bone pain [Unknown]
  - Hyperhidrosis [Unknown]
  - Chest pain [Unknown]
  - Amnesia [Unknown]
  - Paralysis [Unknown]
  - Functional gastrointestinal disorder [Unknown]
  - Gastrointestinal hypomotility [Unknown]
  - Abdominal pain [Unknown]
  - Colectomy [Unknown]
  - Failure to thrive [Unknown]
  - Limb operation [Unknown]
  - Spinal nerve stimulator implantation [Unknown]
  - Malabsorption [Unknown]
  - Dysuria [Unknown]
  - Dyspnoea [Unknown]
  - Disability [Unknown]
  - Autoimmune disorder [Unknown]
  - Deep vein thrombosis [Unknown]
  - Intrathecal pump insertion [Unknown]
  - Dehydration [Unknown]
  - Chronic cerebrospinal venous insufficiency [Unknown]
  - Ileus paralytic [Unknown]
  - Constipation [Unknown]
  - Emotional distress [Unknown]
  - Anal incontinence [Unknown]
  - Hypovitaminosis [Unknown]
  - Chronic fatigue syndrome [Unknown]
  - Urinary incontinence [Unknown]
  - Nerve injury [Unknown]
  - Haematochezia [Unknown]
  - Ankle operation [Unknown]
  - Immune system disorder [Unknown]
  - Diarrhoea [Unknown]
  - Female sexual dysfunction [Unknown]
  - Abnormal clotting factor [Unknown]
  - Arthralgia [Unknown]
  - Hypokinesia [Unknown]
  - Depression [Unknown]
  - Jugular vein occlusion [Unknown]
  - Burning sensation [Unknown]

NARRATIVE: CASE EVENT DATE: 1996
